FAERS Safety Report 4757936-1 (Version None)
Quarter: 2005Q3

REPORT INFORMATION
  Report Type: 
  Country: None (occurrence: None)
  Receive Date: 20050830
  Receipt Date: 20050819
  Transmission Date: 20060218
  Serious: Yes (Other)
  Sender: FDA-Public Use
  Company Number: 2005118523

PATIENT
  Age: 34 Year
  Sex: Female
  Weight: 113.3993 kg

DRUGS (10)
  1. NORVASC [Suspect]
     Indication: HYPERTENSION
     Dosage: SEE IMAGE
     Dates: start: 19960101
  2. NORVASC [Suspect]
     Indication: HYPERTENSION
     Dosage: SEE IMAGE
     Dates: start: 20030101
  3. NORVASC [Suspect]
     Indication: HYPERTENSION
     Dosage: SEE IMAGE
     Dates: start: 20041101
  4. CONTRAST MEDIA (CONTRAST MEDIA) [Suspect]
     Indication: ILL-DEFINED DISORDER
  5. INSULIN (INSULIN) [Concomitant]
  6. GLUCOPHAGE [Concomitant]
  7. VOLTAREN [Concomitant]
  8. PLAQUENIL [Concomitant]
  9. TRICOR [Concomitant]
  10. XANAX [Concomitant]

REACTIONS (19)
  - ADHESION [None]
  - BLOOD PRESSURE INCREASED [None]
  - CARDIAC STRESS TEST ABNORMAL [None]
  - CHOLECYSTITIS INFECTIVE [None]
  - CHOLELITHIASIS [None]
  - DIFFICULTY IN WALKING [None]
  - ENDOMETRIOSIS [None]
  - IMPAIRED DRIVING ABILITY [None]
  - IMPAIRED HEALING [None]
  - INTESTINAL MASS [None]
  - MENORRHAGIA [None]
  - MOVEMENT DISORDER [None]
  - NAUSEA [None]
  - OVARIAN MASS [None]
  - PAIN [None]
  - POSTOPERATIVE ADHESION [None]
  - STRESS [None]
  - THYROID MASS [None]
  - UMBILICAL HERNIA [None]
